FAERS Safety Report 9523854 (Version 1)
Quarter: 2013Q1

REPORT INFORMATION
  Report Type: Spontaneous
  Country: US (occurrence: None)
  Receive Date: 20130305
  Receipt Date: 20130305
  Transmission Date: 20140127
  Serious: Yes (Disabling)
  Sender: FDA-Public Use
  Company Number: 163-21880-12020363

PATIENT
  Age: 81 Year
  Sex: Male

DRUGS (7)
  1. REVLIMID [Suspect]
     Indication: PLASMA CELL MYELOMA
     Dosage: 10 MG, DAILY X 21 DAYS, PO
     Dates: start: 201010
  2. OMEPRAZOLE(OMEPRAZOLE)(UNKNOWN) [Concomitant]
  3. FLORASTOR(SACCHAROMYCES BOULARDII)(UNKNOWN) [Concomitant]
  4. BACTRIM(BACTRIM)(UNKNOWN) [Concomitant]
  5. VANCOMYCIN(VANCOMYCIN)(UNKNOWN) [Concomitant]
  6. GABAPENTIN(GABAPENTIN)(UNKNOWN) [Concomitant]
  7. DRONABINOL(DRONABINOL)(UNKNOWN) [Concomitant]

REACTIONS (1)
  - Fatigue [None]
